FAERS Safety Report 25267958 (Version 1)
Quarter: 2025Q2

REPORT INFORMATION
  Report Type: Spontaneous
  Country: FR (occurrence: FR)
  Receive Date: 20250505
  Receipt Date: 20250505
  Transmission Date: 20250716
  Serious: Yes (Other)
  Sender: ACCORD
  Company Number: None

PATIENT
  Age: 80 Year
  Sex: Female
  Weight: 51 kg

DRUGS (1)
  1. QUETIAPINE [Suspect]
     Active Substance: QUETIAPINE
     Indication: Hallucination
     Dates: start: 20240712, end: 20241202

REACTIONS (2)
  - Extrapyramidal disorder [Recovered/Resolved]
  - Camptocormia [Recovered/Resolved]

NARRATIVE: CASE EVENT DATE: 20241010
